FAERS Safety Report 5816609-4 (Version None)
Quarter: 2008Q3

REPORT INFORMATION
  Report Type: 
  Country: None (occurrence: None)
  Receive Date: 20080721
  Receipt Date: 20080709
  Transmission Date: 20090109
  Serious: Yes (Other)
  Sender: FDA-Public Use
  Company Number: US-PFIZER INC-2008057842

PATIENT

DRUGS (1)
  1. REVATIO [Suspect]
     Dates: start: 20080422, end: 20080612

REACTIONS (1)
  - GASTRIC DISORDER [None]
